FAERS Safety Report 18680188 (Version 1)
Quarter: 2020Q4

REPORT INFORMATION
  Report Type: Spontaneous
  Country: US (occurrence: US)
  Receive Date: 20201229
  Receipt Date: 20201229
  Transmission Date: 20210114
  Serious: Yes (Other)
  Sender: FDA-Public Use
  Company Number: US-TEVA-2020-US-1862101

PATIENT
  Sex: Male

DRUGS (1)
  1. INDOMETHACIN. [Suspect]
     Active Substance: INDOMETHACIN
     Indication: PAIN
     Route: 065

REACTIONS (2)
  - Near death experience [Recovered/Resolved]
  - Gastric disorder [Unknown]
